FAERS Safety Report 5576756-1 (Version None)
Quarter: 2007Q4

REPORT INFORMATION
  Report Type: 
  Country: None (occurrence: None)
  Receive Date: 20071228
  Receipt Date: 20071219
  Transmission Date: 20080405
  Serious: Yes (Death, Hospitalization)
  Sender: FDA-Public Use
  Company Number: US-BRISTOL-MYERS SQUIBB COMPANY-14020523

PATIENT
  Age: 48 Year
  Sex: Female

DRUGS (5)
  1. IXEMPRA [Suspect]
     Indication: BREAST CANCER STAGE IV
     Dates: start: 20071106
  2. XELODA [Concomitant]
  3. VICODIN [Concomitant]
     Route: 048
  4. MULTI-VITAMIN [Concomitant]
  5. ALDACTONE [Concomitant]

REACTIONS (5)
  - COLITIS ISCHAEMIC [None]
  - HEPATORENAL FAILURE [None]
  - LOSS OF CONSCIOUSNESS [None]
  - PYREXIA [None]
  - SEPSIS [None]
